FAERS Safety Report 4838558-0 (Version None)
Quarter: 2005Q4

REPORT INFORMATION
  Report Type: 
  Country: None (occurrence: None)
  Receive Date: 20051123
  Receipt Date: 20051112
  Transmission Date: 20060501
  Serious: Yes (Hospitalization)
  Sender: FDA-Public Use
  Company Number: 200511IM000728

PATIENT
  Age: 45 Year
  Sex: Male
  Weight: 94.3482 kg

DRUGS (3)
  1. INFERGEN [Suspect]
     Indication: HEPATITIS C VIRUS
     Dosage: 15 UG, SC, SUBCUTANEOUS
     Route: 058
     Dates: start: 20041101
  2. RIBAVIRIN [Concomitant]
  3. EFFEXOR [Concomitant]

REACTIONS (6)
  - ANAEMIA [None]
  - ASTHENIA [None]
  - DYSPNOEA [None]
  - LUNG INFECTION [None]
  - PULMONARY OEDEMA [None]
  - TREMOR [None]
